FAERS Safety Report 11492735 (Version 1)
Quarter: 2015Q3

REPORT INFORMATION
  Report Type: Spontaneous
  Country: AU (occurrence: AU)
  Receive Date: 20150911
  Receipt Date: 20150911
  Transmission Date: 20151125
  Serious: Yes (Hospitalization)
  Sender: FDA-Public Use
  Company Number: AU-HOSPIRA-3001570

PATIENT
  Age: 82 Year
  Sex: Female

DRUGS (3)
  1. SALINE [Concomitant]
     Active Substance: SODIUM CHLORIDE
     Indication: CATHETER MANAGEMENT
  2. PROPOFOL. [Suspect]
     Active Substance: PROPOFOL
     Indication: INDUCTION OF ANAESTHESIA
     Route: 013
  3. HEPARIN [Concomitant]
     Active Substance: HEPARIN SODIUM
     Indication: ANTICOAGULANT THERAPY
     Route: 042

REACTIONS (7)
  - Arteriovenous fistula [Recovering/Resolving]
  - Cerebellar ischaemia [Recovering/Resolving]
  - Cerebral ischaemia [Recovering/Resolving]
  - Vascular pseudoaneurysm [Recovering/Resolving]
  - Cerebral infarction [Recovering/Resolving]
  - Cerebellar infarction [Recovering/Resolving]
  - Incorrect route of drug administration [Recovering/Resolving]
